FAERS Safety Report 8082261-3 (Version None)
Quarter: 2012Q1

REPORT INFORMATION
  Report Type: 
  Country: None (occurrence: None)
  Receive Date: 20120127
  Receipt Date: 20110211
  Transmission Date: 20120608
  Serious: No
  Sender: FDA-Public Use
  Company Number: US-ABBOTT-11P-163-0705423-00

PATIENT
  Sex: Female

DRUGS (2)
  1. HUMIRA [Suspect]
     Indication: PSORIASIS
     Dosage: TAKING MEDICATION A TOTAL OF TWO MONTHS.
     Route: 058
     Dates: start: 20101201
  2. HUMIRA [Suspect]
     Indication: GUTTATE PSORIASIS
     Dosage: 1ST LOADING DOSE
     Dates: start: 20101201, end: 20101201

REACTIONS (2)
  - EPISTAXIS [None]
  - MENORRHAGIA [None]
